FAERS Safety Report 18880731 (Version 2)
Quarter: 2021Q1

REPORT INFORMATION
  Report Type: Spontaneous
  Country: US (occurrence: US)
  Receive Date: 20210211
  Receipt Date: 20210312
  Transmission Date: 20210420
  Serious: Yes (Other)
  Sender: FDA-Public Use
  Company Number: US-BAYER-2021-060376

PATIENT
  Sex: Female
  Weight: 54.42 kg

DRUGS (1)
  1. SKYLA [Suspect]
     Active Substance: LEVONORGESTREL
     Indication: CONTRACEPTION
     Dosage: 14 ?G PER DAY, CONTINUOUSLY
     Route: 015
     Dates: start: 20181108

REACTIONS (5)
  - Lymphadenopathy [None]
  - Amenorrhoea [None]
  - Vaginal haemorrhage [Not Recovered/Not Resolved]
  - Adverse event [Not Recovered/Not Resolved]
  - Device dislocation [Not Recovered/Not Resolved]
